FAERS Safety Report 4455219-0 (Version None)
Quarter: 2004Q3

REPORT INFORMATION
  Report Type: 
  Country: None (occurrence: None)
  Receive Date: 20040830
  Receipt Date: 20040428
  Transmission Date: 20050211
  Serious: No
  Sender: FDA-Public Use
  Company Number: 206105

PATIENT
  Age: 42 Year
  Sex: Male
  Weight: 92.5 kg

DRUGS (7)
  1. XOLAIR [Suspect]
     Indication: ASTHMA
     Dosage: 300 MG, Q2W, SUBCUTANEOUS
     Route: 058
     Dates: start: 20040204
  2. ADVAIR DISKUS [Concomitant]
  3. FORADIL [Concomitant]
  4. VASOTEC [Concomitant]
  5. FLONASE [Concomitant]
  6. PREDNISONE [Concomitant]
  7. ZITHROMAX [Concomitant]

REACTIONS (2)
  - INSOMNIA [None]
  - UPPER RESPIRATORY TRACT INFECTION [None]
